FAERS Safety Report 7517642-7 (Version None)
Quarter: 2011Q2

REPORT INFORMATION
  Report Type: 
  Country: None (occurrence: None)
  Receive Date: 20110602
  Receipt Date: 20110521
  Transmission Date: 20111010
  Serious: Yes (Hospitalization, Other)
  Sender: FDA-Public Use
  Company Number: CN-PAR PHARMACEUTICAL, INC-2011SCPR003011

PATIENT

DRUGS (1)
  1. PROPAFENONE HCL [Suspect]
     Indication: PRODUCT USED FOR UNKNOWN INDICATION
     Dosage: 10 G, UNKNOWN
     Route: 048

REACTIONS (6)
  - OVERDOSE [None]
  - SUICIDE ATTEMPT [None]
  - CONVULSION [None]
  - VENTRICULAR FIBRILLATION [None]
  - COMA [None]
  - HYPOTENSION [None]
